FAERS Safety Report 15678248 (Version 1)
Quarter: 2018Q4

REPORT INFORMATION
  Report Type: Spontaneous
  Country: US (occurrence: US)
  Receive Date: 20181201
  Receipt Date: 20181201
  Transmission Date: 20190205
  Serious: Yes (Other)
  Sender: FDA-Public Use
  Company Number: US-AUROBINDO-AUR-APU-2018-056452

PATIENT
  Sex: Female
  Weight: 68.03 kg

DRUGS (2)
  1. GABAPENTIN CAPSULES 300 MG [Suspect]
     Active Substance: GABAPENTIN
     Indication: PAIN
     Dosage: 1 DOSAGE FORM, AT BED TIME
  2. MYRBETRIQ [Concomitant]
     Active Substance: MIRABEGRON
     Indication: PRODUCT USED FOR UNKNOWN INDICATION
     Dosage: UNK
     Route: 065

REACTIONS (8)
  - Depression [Unknown]
  - Diplopia [Unknown]
  - Speech disorder [Unknown]
  - Anxiety [Unknown]
  - Dizziness [Unknown]
  - Coordination abnormal [Unknown]
  - Tonic clonic movements [Unknown]
  - Nausea [Unknown]
